FAERS Safety Report 13537465 (Version 1)
Quarter: 2017Q2

REPORT INFORMATION
  Report Type: Spontaneous
  Country: NL (occurrence: NL)
  Receive Date: 20170511
  Receipt Date: 20170511
  Transmission Date: 20170830
  Serious: Yes (Life-Threatening, Hospitalization)
  Sender: FDA-Public Use
  Company Number: NL-MUNDIPHARMA DS AND PHARMACOVIGILANCE-GBR-2017-0045148

PATIENT
  Age: 55 Year
  Sex: Male
  Weight: 70 kg

DRUGS (1)
  1. OXYCONTIN [Suspect]
     Active Substance: OXYCODONE HYDROCHLORIDE
     Indication: HERNIA
     Dosage: 1 DF, UNK (120MG STRENGTH)
     Route: 065
     Dates: start: 20070101, end: 20170407

REACTIONS (9)
  - Euphoric mood [Recovering/Resolving]
  - Gastrointestinal disorder [Recovering/Resolving]
  - Loss of dreaming [Recovering/Resolving]
  - Confusional state [Recovering/Resolving]
  - Somnolence [Recovering/Resolving]
  - Lethargy [Recovering/Resolving]
  - Constipation [Recovering/Resolving]
  - Drug use disorder [Recovering/Resolving]
  - Feeling abnormal [Recovering/Resolving]

NARRATIVE: CASE EVENT DATE: 2007
